FAERS Safety Report 11610559 (Version 1)
Quarter: 2015Q4

REPORT INFORMATION
  Report Type: Report from Study
  Country: US (occurrence: US)
  Receive Date: 20151008
  Receipt Date: 20151008
  Transmission Date: 20160304
  Serious: Yes (Other)
  Sender: FDA-Public Use
  Company Number: US-ROCHE-1635904

PATIENT
  Sex: Female

DRUGS (5)
  1. ORTHO CYCLEN [Concomitant]
     Active Substance: ETHINYL ESTRADIOL\NORGESTIMATE
     Indication: CONTRACEPTION
     Dosage: STARTED AT GESTATION WEEK 13.1?STOPPED AT GESTATION WEEK 19.3
     Route: 064
     Dates: start: 20140820, end: 20141001
  2. RIBAVIRIN. [Suspect]
     Active Substance: RIBAVIRIN
     Indication: PRODUCT USED FOR UNKNOWN INDICATION
     Dosage: STOPPED AROUND THE TIME OF CONCEPTION
     Route: 064
     Dates: end: 201405
  3. PEG-INTERFERON ALFA 2A [Suspect]
     Active Substance: PEGINTERFERON ALFA-2A
     Indication: PRODUCT USED FOR UNKNOWN INDICATION
     Route: 064
     Dates: end: 201405
  4. SOFOSBUVIR [Suspect]
     Active Substance: SOFOSBUVIR
     Indication: PRODUCT USED FOR UNKNOWN INDICATION
     Route: 064
     Dates: end: 201405
  5. PROVERA [Concomitant]
     Active Substance: MEDROXYPROGESTERONE ACETATE
     Indication: CONTRACEPTION
     Dosage: STARTED AT GESTATION WEEK 3?STOPPED AT GESTATION WEEK 15
     Route: 064
     Dates: start: 20140609

REACTIONS (2)
  - Foetal exposure during pregnancy [Unknown]
  - Positional plagiocephaly [Unknown]
